FAERS Safety Report 4563683-1 (Version None)
Quarter: 2005Q1

REPORT INFORMATION
  Report Type: 
  Country: None (occurrence: None)
  Receive Date: 20050125
  Receipt Date: 20050113
  Transmission Date: 20050727
  Serious: Yes (Other)
  Sender: FDA-Public Use
  Company Number: 2005012658

PATIENT
  Sex: Female

DRUGS (1)
  1. ZOLOFT [Suspect]
     Indication: ILL-DEFINED DISORDER
     Dosage: (50 MG)

REACTIONS (1)
  - HAEMORRHAGE [None]
